FAERS Safety Report 7608648-8 (Version None)
Quarter: 2011Q3

REPORT INFORMATION
  Report Type: 
  Country: None (occurrence: None)
  Receive Date: 20110714
  Receipt Date: 20110705
  Transmission Date: 20111222
  Serious: Yes (Hospitalization, Other)
  Sender: FDA-Public Use
  Company Number: US-AMGEN-USASP2011034020

PATIENT
  Sex: Female

DRUGS (2)
  1. ENBREL [Suspect]
     Indication: RHEUMATOID ARTHRITIS
     Dosage: 50 MG, 2 TIMES/WK
     Dates: start: 20030810
  2. ENBREL [Suspect]
     Indication: PSORIASIS

REACTIONS (6)
  - RECTAL HAEMORRHAGE [None]
  - PULMONARY EMBOLISM [None]
  - PAIN IN EXTREMITY [None]
  - SYNCOPE [None]
  - MEMORY IMPAIRMENT [None]
  - DIZZINESS [None]
